FAERS Safety Report 4303512-4 (Version None)
Quarter: 2004Q1

REPORT INFORMATION
  Report Type: 
  Country: None (occurrence: None)
  Receive Date: 20040224
  Receipt Date: 20040224
  Transmission Date: 20041129
  Serious: Yes (Life-Threatening, Hospitalization)
  Sender: FDA-Public Use
  Company Number: None

PATIENT
  Age: 34 Year
  Sex: Male
  Weight: 106 kg

DRUGS (2)
  1. ABCIXIMAB 10MG/5ML VIAL LILLY [Suspect]
     Indication: MYOCARDIAL INFARCTION
     Dosage: 7.2 MG ONE TIME INTRAVENOUS, 26.2 ONE TIME INTRAVENOUS
     Route: 042
     Dates: start: 20040112, end: 20040112
  2. ANGIOMAX [Concomitant]

REACTIONS (1)
  - THROMBOCYTOPENIA [None]
